FAERS Safety Report 8464113-X (Version None)
Quarter: 2012Q2

REPORT INFORMATION
  Report Type: 
  Country: None (occurrence: None)
  Receive Date: 20120625
  Receipt Date: 20120621
  Transmission Date: 20120825
  Serious: Yes (Life-Threatening)
  Sender: FDA-Public Use
  Company Number: FR-ASTRAZENECA-2012SE41890

PATIENT
  Age: 19499 Day
  Sex: Female

DRUGS (5)
  1. DIPRIVAN [Suspect]
     Route: 042
     Dates: start: 20110313, end: 20110313
  2. MIDAZOLAM HCL [Suspect]
     Route: 042
     Dates: start: 20110313, end: 20110313
  3. CEFAZOLIN [Suspect]
     Route: 042
     Dates: start: 20110313, end: 20110313
  4. NORCURON [Suspect]
     Route: 042
     Dates: start: 20110313, end: 20110313
  5. SUFENTANIL CITRATE [Suspect]
     Route: 042
     Dates: start: 20110313, end: 20110313

REACTIONS (1)
  - ANAPHYLACTIC SHOCK [None]
